FAERS Safety Report 20213245 (Version 6)
Quarter: 2023Q4

REPORT INFORMATION
  Report Type: Spontaneous
  Country: US (occurrence: US)
  Receive Date: 20211221
  Receipt Date: 20231114
  Transmission Date: 20240109
  Serious: Yes (Hospitalization)
  Sender: FDA-Public Use
  Company Number: US-PFIZER INC-202101068745

PATIENT
  Age: 56 Year
  Sex: Male
  Weight: 99.065 kg

DRUGS (5)
  1. SOMAVERT [Suspect]
     Active Substance: PEGVISOMANT
     Indication: Acromegaly
     Dosage: 15 MG, DAILY
     Route: 058
     Dates: start: 20210813
  2. SOMAVERT [Suspect]
     Active Substance: PEGVISOMANT
     Indication: Immunoglobulins
     Dosage: 25 MG, DAILY
     Route: 058
     Dates: start: 20210813
  3. SOMAVERT [Suspect]
     Active Substance: PEGVISOMANT
     Dosage: 30 MG, 1X/DAY (30MG SHOT ONCE A DAY)
  4. SOMAVERT [Suspect]
     Active Substance: PEGVISOMANT
     Dosage: 15MG TO 20MG ABOUT 3 WEEKS
     Route: 042
  5. SOMAVERT [Suspect]
     Active Substance: PEGVISOMANT
     Dosage: 30 MG, DAILY
     Dates: start: 2021, end: 202307

REACTIONS (12)
  - Herpes zoster [Not Recovered/Not Resolved]
  - Post herpetic neuralgia [Unknown]
  - Injection site discomfort [Recovered/Resolved]
  - Injection site swelling [Not Recovered/Not Resolved]
  - Abdominal discomfort [Not Recovered/Not Resolved]
  - Diarrhoea [Recovering/Resolving]
  - Constipation [Unknown]
  - Intentional product misuse [Unknown]
  - Injection site pain [Unknown]
  - Abdominal pain upper [Unknown]
  - Abdominal distension [Unknown]
  - Off label use [Unknown]

NARRATIVE: CASE EVENT DATE: 20210101
